FAERS Safety Report 9773654 (Version 2)
Quarter: 2014Q3

REPORT INFORMATION
  Report Type: Spontaneous
  Country: US (occurrence: US)
  Receive Date: 20131219
  Receipt Date: 20140821
  Transmission Date: 20150326
  Serious: Yes (Hospitalization, Other)
  Sender: FDA-Public Use
  Company Number: US-009507513-1312USA008389

PATIENT
  Sex: Female
  Weight: 74.83 kg

DRUGS (1)
  1. NUVARING [Suspect]
     Active Substance: ETHINYL ESTRADIOL\ETONOGESTREL
     Indication: CONTRACEPTION
     Dosage: EVERY 3 WEEKS AS DIRECTED
     Route: 067
     Dates: start: 20070215, end: 20071115

REACTIONS (5)
  - Convulsion [Unknown]
  - Pulmonary embolism [Unknown]
  - Intracranial venous sinus thrombosis [Unknown]
  - Cerebral haemorrhage [Unknown]
  - Deep vein thrombosis [Unknown]

NARRATIVE: CASE EVENT DATE: 20071115
